FAERS Safety Report 8496387-3 (Version None)
Quarter: 2012Q3

REPORT INFORMATION
  Report Type: 
  Country: None (occurrence: None)
  Receive Date: 20120709
  Receipt Date: 20120705
  Transmission Date: 20120928
  Serious: No
  Sender: FDA-Public Use
  Company Number: US-PFIZER INC-2011070770

PATIENT
  Sex: Female

DRUGS (1)
  1. CALAN [Suspect]
     Dosage: 360 MG, 1X/DAY, TWO 180MG TABLETS ONCE IN MORNING

REACTIONS (4)
  - HYPERTENSION [None]
  - OROPHARYNGEAL PAIN [None]
  - REACTION TO DRUG EXCIPIENTS [None]
  - INAPPROPRIATE SCHEDULE OF DRUG ADMINISTRATION [None]
